FAERS Safety Report 5822903-3 (Version None)
Quarter: 2008Q3

REPORT INFORMATION
  Report Type: 
  Country: None (occurrence: None)
  Receive Date: 20080724
  Receipt Date: 20080724
  Transmission Date: 20090109
  Serious: No
  Sender: FDA-Public Use
  Company Number: None

PATIENT
  Age: 65 Year
  Sex: Male
  Weight: 86.1834 kg

DRUGS (1)
  1. OSMOPREP [Suspect]
     Indication: COLONOSCOPY
     Dosage: PER INSTRUCTIONS

REACTIONS (4)
  - CONSTIPATION [None]
  - ILL-DEFINED DISORDER [None]
  - MALAISE [None]
  - PAIN [None]
